FAERS Safety Report 13265407 (Version 2)
Quarter: 2017Q2

REPORT INFORMATION
  Report Type: Spontaneous
  Country: FR (occurrence: FR)
  Receive Date: 20170223
  Receipt Date: 20170425
  Transmission Date: 20170830
  Serious: Yes (Death)
  Sender: FDA-Public Use
  Company Number: FR-TEVA-726470ROM

PATIENT
  Age: 73 Year
  Sex: Female

DRUGS (9)
  1. SPIRONOLACTONE. [Concomitant]
     Active Substance: SPIRONOLACTONE
  2. ZARZIO [Concomitant]
     Active Substance: FILGRASTIM
  3. TEVAGRASTIM  30 MUI/0.5 ML [Suspect]
     Active Substance: FILGRASTIM
     Dosage: 1 DOSAGE FORMS DAILY;
     Route: 058
     Dates: start: 20161227
  4. RAMIPRIL. [Concomitant]
     Active Substance: RAMIPRIL
  5. NEBIVOLOL. [Concomitant]
     Active Substance: NEBIVOLOL
  6. FOSAVANCE [Concomitant]
     Active Substance: ALENDRONATE SODIUM\CHOLECALCIFEROL
  7. INNOCHEP [Concomitant]
  8. ALLOPURINOL. [Concomitant]
     Active Substance: ALLOPURINOL
  9. PANTOPRAZOLE [Concomitant]
     Active Substance: PANTOPRAZOLE

REACTIONS (2)
  - Lung disorder [Fatal]
  - Incorrect product storage [Unknown]

NARRATIVE: CASE EVENT DATE: 20161227
